FAERS Safety Report 4494843-6 (Version None)
Quarter: 2004Q4

REPORT INFORMATION
  Report Type: 
  Country: None (occurrence: None)
  Receive Date: 20041103
  Receipt Date: 20041025
  Transmission Date: 20050328
  Serious: Yes (Life-Threatening, Other)
  Sender: FDA-Public Use
  Company Number: HQWYE028025OCT04

PATIENT
  Age: 46 Year
  Sex: Female

DRUGS (1)
  1. TRANGOREX (AMIODARONE, INJECTION) [Suspect]
     Indication: ATRIAL FIBRILLATION
     Dosage: 300 MG CONT; ADMINISTRATION OF 10 ML
     Route: 042
     Dates: start: 20041008, end: 20041008

REACTIONS (10)
  - BLOOD BICARBONATE INCREASED [None]
  - BLOOD PH INCREASED [None]
  - BLOOD UREA INCREASED [None]
  - FACE OEDEMA [None]
  - HYPOTENSION [None]
  - MEDICATION ERROR [None]
  - OEDEMA PERIPHERAL [None]
  - OXYGEN SATURATION DECREASED [None]
  - PO2 DECREASED [None]
  - WHITE BLOOD CELL COUNT DECREASED [None]
